FAERS Safety Report 11484215 (Version 1)
Quarter: 2015Q3

REPORT INFORMATION
  Report Type: Spontaneous
  Country: US (occurrence: US)
  Receive Date: 20150903
  Receipt Date: 20150903
  Transmission Date: 20151125
  Serious: No
  Sender: FDA-Public Use
  Company Number: US-ELI_LILLY_AND_COMPANY-US201206007702

PATIENT
  Age: 79 Year
  Sex: Male

DRUGS (1)
  1. CYMBALTA [Suspect]
     Active Substance: DULOXETINE HYDROCHLORIDE
     Indication: BACK PAIN
     Dosage: 30 MG, BID

REACTIONS (8)
  - Tremor [Unknown]
  - Pain in extremity [Unknown]
  - Sleep talking [Unknown]
  - Dyskinesia [Unknown]
  - Hyperhidrosis [Unknown]
  - Lip injury [Unknown]
  - Asthenia [Unknown]
  - Insomnia [Unknown]
